FAERS Safety Report 6211768-6 (Version None)
Quarter: 2009Q2

REPORT INFORMATION
  Report Type: 
  Country: None (occurrence: None)
  Receive Date: 20090602
  Receipt Date: 20090526
  Transmission Date: 20091009
  Serious: Yes (Other)
  Sender: FDA-Public Use
  Company Number: BR-BAYER-BR-2006-021660

PATIENT
  Age: 53 Year
  Sex: Female
  Weight: 44 kg

DRUGS (3)
  1. BETAFERON [Suspect]
     Indication: MULTIPLE SCLEROSIS
     Dosage: UNK MIU, 1 DOSE ONLY
     Route: 058
     Dates: start: 20060701, end: 20060701
  2. IMURAN [Concomitant]
     Indication: DRUG USE FOR UNKNOWN INDICATION
     Dosage: 1 TAB(S), 3X/DAY [DAILY DOSE: 3 TAB(S)]
     Route: 048
     Dates: end: 20060701
  3. HOMEOPATIC PREPARATION [Concomitant]
     Indication: DRUG USE FOR UNKNOWN INDICATION
     Dosage: UNK, UNK
     Route: 048

REACTIONS (14)
  - ATROPHY [None]
  - BLOOD PRESSURE DECREASED [None]
  - DIZZINESS [None]
  - FEELING COLD [None]
  - GAIT DISTURBANCE [None]
  - GASTROINTESTINAL DISORDER [None]
  - HYPERHIDROSIS [None]
  - MOBILITY DECREASED [None]
  - MONOPLEGIA [None]
  - MUSCULAR WEAKNESS [None]
  - MUSCULOSKELETAL STIFFNESS [None]
  - PAIN IN EXTREMITY [None]
  - THROMBOSIS [None]
  - URINARY INCONTINENCE [None]
